FAERS Safety Report 13216373 (Version 2)
Quarter: 2017Q1

REPORT INFORMATION
  Report Type: Spontaneous
  Country: US (occurrence: US)
  Receive Date: 20170210
  Receipt Date: 20170308
  Transmission Date: 20170428
  Serious: No
  Sender: FDA-Public Use
  Company Number: US-ASTRAZENECA-2017SE11869

PATIENT
  Age: 486 Month
  Weight: 81.6 kg

DRUGS (2)
  1. TUDORZA PRESSAIR [Suspect]
     Active Substance: ACLIDINIUM BROMIDE
     Indication: ASTHMA
     Dosage: 400 UG,1 PUFF TWO TIMES A DAY
     Route: 055
     Dates: start: 201701
  2. VENTOLIN RESCUE INHALER [Concomitant]
     Indication: ASTHMA
     Route: 055

REACTIONS (2)
  - Product taste abnormal [Unknown]
  - Intentional product misuse [Not Recovered/Not Resolved]

NARRATIVE: CASE EVENT DATE: 201701
